FAERS Safety Report 9888409 (Version 1)
Quarter: 2014Q1

REPORT INFORMATION
  Report Type: Spontaneous
  Country: US (occurrence: US)
  Receive Date: 20140211
  Receipt Date: 20140211
  Transmission Date: 20141002
  Serious: No
  Sender: FDA-Public Use
  Company Number: US-PFIZER INC-2014037408

PATIENT
  Age: 51 Year
  Sex: Male
  Weight: 74.83 kg

DRUGS (2)
  1. ARTHROTEC [Suspect]
     Indication: JOINT SWELLING
     Dosage: MISOPROSTOL 0.2MG/ DICLOFENAC SODIUM 75MG, 2X/DAY
     Dates: start: 20140131
  2. ARTHROTEC [Suspect]
     Indication: JOINT EFFUSION

REACTIONS (2)
  - Dyspepsia [Unknown]
  - Headache [Not Recovered/Not Resolved]
